FAERS Safety Report 18604712 (Version 1)
Quarter: 2020Q4

REPORT INFORMATION
  Report Type: Spontaneous
  Country: US (occurrence: US)
  Receive Date: 20201211
  Receipt Date: 20201211
  Transmission Date: 20210114
  Serious: Yes (Hospitalization)
  Sender: FDA-Public Use
  Company Number: None

PATIENT
  Age: 47 Year
  Sex: Female

DRUGS (11)
  1. LETAIRIS [Suspect]
     Active Substance: AMBRISENTAN
     Indication: PULMONARY ARTERIAL HYPERTENSION
     Route: 048
  2. LOVENOX [Concomitant]
     Active Substance: ENOXAPARIN SODIUM
  3. VITAMIN D [Concomitant]
     Active Substance: VITAMIN D NOS
  4. ADCIRCA [Concomitant]
     Active Substance: TADALAFIL
  5. BUMETANIDE. [Concomitant]
     Active Substance: BUMETANIDE
  6. FAMOTIDINE. [Concomitant]
     Active Substance: FAMOTIDINE
  7. MVI ADULTS [Concomitant]
  8. LORATADINE. [Concomitant]
     Active Substance: LORATADINE
  9. METOLAZONE. [Concomitant]
     Active Substance: METOLAZONE
  10. METOPROLOL SUCC ER [Concomitant]
     Active Substance: METOPROLOL SUCCINATE
  11. UPTRAVI [Concomitant]
     Active Substance: SELEXIPAG

REACTIONS (2)
  - Fluid retention [None]
  - Cellulitis [None]

NARRATIVE: CASE EVENT DATE: 20201211
